FAERS Safety Report 13000668 (Version 1)
Quarter: 2016Q4

REPORT INFORMATION
  Report Type: Spontaneous
  Country: US (occurrence: US)
  Receive Date: 20161206
  Receipt Date: 20161206
  Transmission Date: 20170207
  Serious: Yes (Other)
  Sender: FDA-Public Use
  Company Number: US-AMGEN-USASP2016169284

PATIENT
  Age: 59 Year
  Sex: Male

DRUGS (1)
  1. ENBREL [Suspect]
     Active Substance: ETANERCEPT
     Indication: PSORIATIC ARTHROPATHY
     Dosage: 50 MG, QWK
     Route: 065
     Dates: start: 2016

REACTIONS (6)
  - Myosclerosis [Unknown]
  - Musculoskeletal stiffness [Unknown]
  - Gait disturbance [Unknown]
  - Pain in extremity [Unknown]
  - Myalgia [Unknown]
  - Superficial vein prominence [Unknown]

NARRATIVE: CASE EVENT DATE: 2016
